FAERS Safety Report 22350802 (Version 1)
Quarter: 2023Q2

REPORT INFORMATION
  Report Type: Spontaneous
  Country: US (occurrence: US)
  Receive Date: 20230522
  Receipt Date: 20230522
  Transmission Date: 20230722
  Serious: No
  Sender: FDA-Public Use
  Company Number: US-PFIZER INC-202300193733

PATIENT

DRUGS (3)
  1. VYNDAMAX [Interacting]
     Active Substance: TAFAMIDIS
     Dosage: UNK (28 DOSES)
  2. NORCO [Interacting]
     Active Substance: ACETAMINOPHEN\HYDROCODONE BITARTRATE
     Indication: Arthralgia
     Dosage: UNK (1 NORCO)
  3. TRAMADOL [Interacting]
     Active Substance: TRAMADOL
     Dosage: UNK (2 TRAMADOL)

REACTIONS (1)
  - Drug interaction [Unknown]
